FAERS Safety Report 21199454 (Version 1)
Quarter: 2022Q3

REPORT INFORMATION
  Report Type: Report from Study
  Country: CA (occurrence: CA)
  Receive Date: 20220811
  Receipt Date: 20220811
  Transmission Date: 20221027
  Serious: Yes (Other)
  Sender: FDA-Public Use
  Company Number: CA-ABBVIE-22K-028-4499219-00

PATIENT
  Age: 80 Year
  Sex: Male

DRUGS (1)
  1. RINVOQ [Suspect]
     Active Substance: UPADACITINIB
     Indication: Rheumatoid arthritis
     Route: 048
     Dates: start: 20211104

REACTIONS (4)
  - Fall [Unknown]
  - Joint injury [Unknown]
  - Gastric disorder [Unknown]
  - Abdominal distension [Unknown]

NARRATIVE: CASE EVENT DATE: 20220805
